FAERS Safety Report 25119142 (Version 1)
Quarter: 2025Q1

REPORT INFORMATION
  Report Type: Spontaneous
  Country: US (occurrence: None)
  Receive Date: 20250324
  Receipt Date: 20250324
  Transmission Date: 20250408
  Serious: No
  Sender: FDA-CTU
  Company Number: None

PATIENT
  Age: 69 Year
  Sex: Female
  Weight: 77.11 kg

DRUGS (1)
  1. ORENCIA [Suspect]
     Active Substance: ABATACEPT
     Indication: Rheumatoid arthritis
     Dosage: ?INJECT 125MG SUBCUTANEOUSLY ONCE A  WEEK AS DIRECTED.
     Route: 058
     Dates: start: 202101

REACTIONS (2)
  - Sinusitis [None]
  - Intentional dose omission [None]
